FAERS Safety Report 23130724 (Version 1)
Quarter: 2023Q4

REPORT INFORMATION
  Report Type: Spontaneous
  Country: US (occurrence: None)
  Receive Date: 20231027
  Receipt Date: 20231027
  Transmission Date: 20240109
  Serious: No
  Sender: FDA-Public Use
  Company Number: None

PATIENT
  Age: 14 Year
  Sex: Male

DRUGS (2)
  1. GENOTROPIN [Suspect]
     Active Substance: SOMATROPIN
     Indication: Short stature
     Dosage: FREQUENCY : DAILY;?
     Route: 058
     Dates: start: 202310
  2. GENOTROPIN [Concomitant]
     Active Substance: SOMATROPIN

REACTIONS (2)
  - Device delivery system issue [None]
  - Drug dose omission by device [None]

NARRATIVE: CASE EVENT DATE: 20231024
